FAERS Safety Report 12863057 (Version 5)
Quarter: 2017Q3

REPORT INFORMATION
  Report Type: Report from Study
  Country: None (occurrence: BE)
  Receive Date: 20161019
  Receipt Date: 20170719
  Transmission Date: 20171127
  Serious: Yes (Hospitalization)
  Sender: FDA-Public Use
  Company Number: BE-ABBVIE-16P-013-1756763-00

PATIENT
  Age: 78 Year
  Sex: Female

DRUGS (8)
  1. DUODOPA [Suspect]
     Active Substance: CARBIDOPA\LEVODOPA
     Dosage: AM= 1 ML; CD= 1.7 ML/H DURING 16 HRS; ED= 0.8 ML
     Route: 050
     Dates: start: 20160630, end: 20161021
  2. PROLOPA [Concomitant]
     Active Substance: BENSERAZIDE\LEVODOPA
     Indication: PRODUCT USED FOR UNKNOWN INDICATION
     Dosage: FORM STRENGTH: 200MG/50MG
  3. DUODOPA [Suspect]
     Active Substance: CARBIDOPA\LEVODOPA
     Indication: PARKINSON^S DISEASE
     Dosage: AM= 5 ML; CD= 1.8 ML/H DURING 16 HRS; ED= 1 ML
     Route: 050
     Dates: start: 20100823, end: 20100824
  4. DUODOPA [Suspect]
     Active Substance: CARBIDOPA\LEVODOPA
     Dosage: DOSES CONTINUOUSLY MONITORED AND ADAPTED
     Route: 050
     Dates: start: 20100824, end: 20160630
  5. DUODOPA [Suspect]
     Active Substance: CARBIDOPA\LEVODOPA
     Dosage: AM- 0ML; CD=1.5ML/HR DURING 16HRS; ED=0.8ML
     Route: 050
     Dates: start: 20161026, end: 20170303
  6. DUODOPA [Suspect]
     Active Substance: CARBIDOPA\LEVODOPA
     Dosage: AM- 0ML; CD=1.4ML/HR DURING 16HRS; ED=0.8ML
     Route: 050
     Dates: start: 20170303
  7. DUODOPA [Suspect]
     Active Substance: CARBIDOPA\LEVODOPA
     Dosage: AM- 0 ML; CD=1.6ML/HR DURING 16HRS; ED=0.8ML
     Route: 050
     Dates: start: 20161021, end: 20161026
  8. PROLOPA [Concomitant]
     Active Substance: BENSERAZIDE\LEVODOPA
     Dosage: FORM STRENGTH: 200MG/50MG 5/DAY AS RESCUE MEDICATION?5/DAY AS RESCUE MEDICATION

REACTIONS (4)
  - Dyskinesia [Unknown]
  - Hip fracture [Recovering/Resolving]
  - Device alarm issue [Recovered/Resolved]
  - Fall [Recovered/Resolved]

NARRATIVE: CASE EVENT DATE: 20161014
